FAERS Safety Report 12825854 (Version 1)
Quarter: 2016Q4

REPORT INFORMATION
  Report Type: Spontaneous
  Country: US (occurrence: US)
  Receive Date: 20161007
  Receipt Date: 20161007
  Transmission Date: 20170207
  Serious: No
  Sender: FDA-Public Use
  Company Number: US-WATSON-2015-19985

PATIENT
  Age: 51 Year
  Sex: Female

DRUGS (9)
  1. NEURONTIN [Concomitant]
     Active Substance: GABAPENTIN
     Indication: ARTHRITIS
  2. RELAFEN [Concomitant]
     Active Substance: NABUMETONE
     Indication: SCOLIOSIS
     Dosage: UNK UNK, UNKNOWN
     Route: 065
  3. RELAFEN [Concomitant]
     Active Substance: NABUMETONE
     Indication: ARTHRITIS
  4. FENTANYL-75 (WATSON LABORATORIES) [Suspect]
     Active Substance: FENTANYL
     Indication: SCOLIOSIS
     Dosage: 75 MCG, CHANGE PATCH EVERY 72 HOURS
     Route: 062
  5. NEURONTIN [Concomitant]
     Active Substance: GABAPENTIN
     Indication: FIBROMYALGIA
  6. RELAFEN [Concomitant]
     Active Substance: NABUMETONE
     Indication: FIBROMYALGIA
  7. FENTANYL-75 (WATSON LABORATORIES) [Suspect]
     Active Substance: FENTANYL
     Indication: ARTHRITIS
  8. NEURONTIN [Concomitant]
     Active Substance: GABAPENTIN
     Indication: SCOLIOSIS
     Dosage: UNK UNK, UNKNOWN
     Route: 065
  9. FENTANYL-75 (WATSON LABORATORIES) [Suspect]
     Active Substance: FENTANYL
     Indication: FIBROMYALGIA

REACTIONS (6)
  - Drug effect incomplete [Not Recovered/Not Resolved]
  - Pain [Recovered/Resolved]
  - Cold sweat [Recovered/Resolved]
  - Hyperhidrosis [Recovered/Resolved]
  - Inappropriate schedule of drug administration [Unknown]
  - Nausea [Recovered/Resolved]

NARRATIVE: CASE EVENT DATE: 201509
